FAERS Safety Report 9365997 (Version 6)
Quarter: 2019Q3

REPORT INFORMATION
  Report Type: Spontaneous
  Country: US (occurrence: US)
  Receive Date: 20130625
  Receipt Date: 20190909
  Transmission Date: 20191005
  Serious: No
  Sender: FDA-Public Use
  Company Number: US-PFIZER INC-2013187554

PATIENT
  Age: 49 Year
  Sex: Female

DRUGS (8)
  1. VENLAFAXINE HCL [Suspect]
     Active Substance: VENLAFAXINE HYDROCHLORIDE
     Indication: MAJOR DEPRESSION
  2. KLONOPIN [Suspect]
     Active Substance: CLONAZEPAM
     Indication: ANXIETY
  3. VENLAFAXINE HCL [Suspect]
     Active Substance: VENLAFAXINE HYDROCHLORIDE
     Indication: PANIC ATTACK
     Dosage: 150 MG, 1X/DAY (ONCE DAILY IN THE MORNING)
     Dates: start: 2013, end: 2013
  4. VENLAFAXINE HCL [Suspect]
     Active Substance: VENLAFAXINE HYDROCHLORIDE
     Indication: PANIC DISORDER
  5. KLONOPIN [Suspect]
     Active Substance: CLONAZEPAM
     Indication: NOCTURNAL DYSPNOEA
     Dosage: 0.1 MG, AS NEEDED (HALF OF 0.2 MG AS NEEDED AT NIGHT)
  6. IRON [Concomitant]
     Active Substance: IRON
     Indication: BLOOD IRON DECREASED
     Dosage: UNK
  7. CALCIUM [Concomitant]
     Active Substance: CALCIUM
     Dosage: UNK
  8. VENLAFAXINE HCL [Suspect]
     Active Substance: VENLAFAXINE HYDROCHLORIDE
     Indication: ANXIETY

REACTIONS (12)
  - Dizziness [Unknown]
  - Somnolence [Unknown]
  - Malaise [Unknown]
  - Dyspnoea [Unknown]
  - Heart rate increased [Unknown]
  - Food poisoning [Unknown]
  - Drug ineffective [Unknown]
  - Nausea [Unknown]
  - Palpitations [Unknown]
  - Fatigue [Unknown]
  - Nocturnal dyspnoea [Unknown]
  - Vitamin D decreased [Unknown]

NARRATIVE: CASE EVENT DATE: 2013
